FAERS Safety Report 6700709-0 (Version None)
Quarter: 2010Q2

REPORT INFORMATION
  Report Type: 
  Country: None (occurrence: None)
  Receive Date: 20100428
  Receipt Date: 20100122
  Transmission Date: 20101027
  Serious: No
  Sender: FDA-Public Use
  Company Number: US-BAYER-201012517NA

PATIENT
  Age: 20 Year
  Sex: Female
  Weight: 103 kg

DRUGS (3)
  1. ULTRAVIST 370 [Suspect]
     Indication: COMPUTERISED TOMOGRAM HEAD
     Dosage: TOTAL DAILY DOSE: 125 ML  UNIT DOSE: 125 ML
     Route: 042
     Dates: start: 20100122, end: 20100122
  2. ACETAZOLAMIDE [Concomitant]
  3. LOESTRIN 24 FE [Concomitant]

REACTIONS (3)
  - NASAL CONGESTION [None]
  - SNEEZING [None]
  - THROAT TIGHTNESS [None]
